FAERS Safety Report 7791030-0 (Version None)
Quarter: 2011Q4

REPORT INFORMATION
  Report Type: 
  Country: None (occurrence: None)
  Receive Date: 20111003
  Receipt Date: 20110919
  Transmission Date: 20120403
  Serious: Yes (Hospitalization, Other)
  Sender: FDA-Public Use
  Company Number: US-BIOGENIDEC-2011BI034209

PATIENT
  Age: 37 Year
  Sex: Female

DRUGS (1)
  1. TYSABRI [Suspect]
     Indication: MULTIPLE SCLEROSIS
     Route: 042
     Dates: start: 20080806, end: 20110805

REACTIONS (7)
  - OPPORTUNISTIC INFECTION [None]
  - BLOOD GLUCOSE INCREASED [None]
  - DEPRESSION [None]
  - MEMORY IMPAIRMENT [None]
  - MULTIPLE SCLEROSIS RELAPSE [None]
  - WEIGHT DECREASED [None]
  - PROGRESSIVE MULTIFOCAL LEUKOENCEPHALOPATHY [None]
